FAERS Safety Report 8147535-6 (Version None)
Quarter: 2012Q1

REPORT INFORMATION
  Report Type: 
  Country: None (occurrence: None)
  Receive Date: 20120218
  Receipt Date: 20110222
  Transmission Date: 20120608
  Serious: No
  Sender: FDA-Public Use
  Company Number: US-ALLERGAN-1102566US

PATIENT
  Sex: Female

DRUGS (3)
  1. BOTOX COSMETIC [Suspect]
     Dosage: UNK UNITS, SINGLE
  2. BOTOX COSMETIC [Suspect]
     Indication: SKIN WRINKLING
     Dosage: UNK UNITS, SINGLE
     Dates: start: 20100201, end: 20100201
  3. BOTOX COSMETIC [Suspect]
     Dosage: UNK UNITS, SINGLE

REACTIONS (3)
  - VERTIGO [None]
  - ANXIETY [None]
  - PALPITATIONS [None]
